FAERS Safety Report 9956166 (Version 1)
Quarter: 2014Q1

REPORT INFORMATION
  Report Type: Spontaneous
  Country: US (occurrence: US)
  Receive Date: 20140304
  Receipt Date: 20140304
  Transmission Date: 20141002
  Serious: No
  Sender: FDA-Public Use
  Company Number: US-ABBVIE-13P-163-1089509-00

PATIENT
  Sex: 0

DRUGS (7)
  1. HUMIRA [Suspect]
     Indication: PRODUCT USED FOR UNKNOWN INDICATION
  2. ENBREL [Suspect]
  3. ZOLOFT [Suspect]
     Indication: PANIC ATTACK
     Dosage: STOPPED AFTER ABOUT 6 WEEKS
  4. ZOLOFT [Suspect]
     Indication: ANXIETY
  5. ZEGERID [Concomitant]
     Indication: GASTRIC DISORDER
     Dosage: DAILY
  6. ZEGERID [Concomitant]
     Indication: PROPHYLAXIS
  7. CLONOPIN [Concomitant]
     Indication: ANXIETY

REACTIONS (7)
  - Upper respiratory tract infection [Unknown]
  - Upper respiratory tract infection [Unknown]
  - Anxiety [Not Recovered/Not Resolved]
  - Fatigue [Not Recovered/Not Resolved]
  - Drug ineffective [Not Recovered/Not Resolved]
  - Feeling abnormal [Not Recovered/Not Resolved]
  - Pain [Not Recovered/Not Resolved]
